FAERS Safety Report 15203228 (Version 1)
Quarter: 2018Q3

REPORT INFORMATION
  Report Type: Spontaneous
  Country: US (occurrence: US)
  Receive Date: 20180726
  Receipt Date: 20180726
  Transmission Date: 20181010
  Serious: Yes (Hospitalization, Other)
  Sender: FDA-Public Use
  Company Number: US-ELI_LILLY_AND_COMPANY-US201807007610

PATIENT
  Age: 69 Year
  Sex: Female

DRUGS (5)
  1. HUMULIN R [Suspect]
     Active Substance: INSULIN HUMAN
     Indication: DIABETES MELLITUS
     Dosage: 9 U, TID
     Route: 065
  2. HUMULIN R U?500 [Suspect]
     Active Substance: INSULIN HUMAN
     Indication: DIABETES MELLITUS
     Dosage: 10 U, TID
     Route: 065
  3. HUMULIN R U?500 [Suspect]
     Active Substance: INSULIN HUMAN
     Dosage: 10 U, TID
     Route: 065
  4. HUMULIN R [Suspect]
     Active Substance: INSULIN HUMAN
     Indication: DIABETES MELLITUS
     Dosage: 9 U, TID
     Route: 065
  5. TOUJEO [Concomitant]
     Active Substance: INSULIN GLARGINE
     Indication: PRODUCT USED FOR UNKNOWN INDICATION

REACTIONS (8)
  - Blood glucose increased [Unknown]
  - Exposure to communicable disease [Unknown]
  - Kidney infection [Recovered/Resolved]
  - Incorrect dose administered [Not Recovered/Not Resolved]
  - Hepatic cirrhosis [Unknown]
  - Blood glucose increased [Not Recovered/Not Resolved]
  - Blood lactic acid increased [Unknown]
  - Product storage error [Unknown]

NARRATIVE: CASE EVENT DATE: 201806
